APPROVED DRUG PRODUCT: RESCRIPTOR
Active Ingredient: DELAVIRDINE MESYLATE
Strength: 100MG
Dosage Form/Route: TABLET;ORAL
Application: N020705 | Product #001
Applicant: VIIV HEALTHCARE CO
Approved: Apr 4, 1997 | RLD: Yes | RS: No | Type: DISCN